FAERS Safety Report 5093530-3 (Version None)
Quarter: 2006Q3

REPORT INFORMATION
  Report Type: 
  Country: None (occurrence: None)
  Receive Date: 20060731
  Receipt Date: 20060414
  Transmission Date: 20061208
  Serious: No
  Sender: FDA-Public Use
  Company Number: 2006PV012062

PATIENT
  Age: 74 Year
  Sex: Female

DRUGS (5)
  1. BYETTA [Suspect]
     Indication: DIABETES MELLITUS NON-INSULIN-DEPENDENT
     Dosage: SEE IMAGE
     Route: 058
     Dates: start: 20060413
  2. GLUCOPHAGE [Concomitant]
  3. AMARYL [Concomitant]
  4. MOBIC [Concomitant]
  5. COUMADIN [Concomitant]

REACTIONS (5)
  - ASTHENIA [None]
  - BREAST MASS [None]
  - FAECES DISCOLOURED [None]
  - FALL [None]
  - VOMITING [None]
